FAERS Safety Report 7812926-7 (Version None)
Quarter: 2011Q4

REPORT INFORMATION
  Report Type: 
  Country: None (occurrence: None)
  Receive Date: 20111013
  Receipt Date: 20111003
  Transmission Date: 20120403
  Serious: Yes (Death, Hospitalization, Other)
  Sender: FDA-Public Use
  Company Number: US-BAXTER-2011BH029256

PATIENT
  Age: 69 Year
  Sex: Male

DRUGS (1)
  1. DIANEAL [Suspect]
     Indication: PERITONEAL DIALYSIS
     Route: 033
     Dates: end: 20110903

REACTIONS (7)
  - RESPIRATORY ARREST [None]
  - HAEMATOCHEZIA [None]
  - PNEUMONIA [None]
  - BACK PAIN [None]
  - DUODENAL ULCER HAEMORRHAGE [None]
  - HAEMOGLOBIN DECREASED [None]
  - FALL [None]
